FAERS Safety Report 17243590 (Version 12)
Quarter: 2020Q4

REPORT INFORMATION
  Report Type: Spontaneous
  Country: US (occurrence: US)
  Receive Date: 20200107
  Receipt Date: 20201020
  Transmission Date: 20210113
  Serious: Yes (Hospitalization)
  Sender: FDA-Public Use
  Company Number: US-LEXICON PHARMACEUTICALS, INC-19-1606-01117

PATIENT
  Age: 60 Year
  Sex: Male

DRUGS (4)
  1. XERMELO [Suspect]
     Active Substance: TELOTRISTAT ETHYL
     Route: 048
  2. XERMELO [Suspect]
     Active Substance: TELOTRISTAT ETHYL
     Indication: CARCINOID TUMOUR
     Dates: start: 20191125
  3. SANDOSTATIN [Concomitant]
     Active Substance: OCTREOTIDE ACETATE
     Indication: CARCINOID TUMOUR
  4. XERMELO [Suspect]
     Active Substance: TELOTRISTAT ETHYL
     Route: 048

REACTIONS (7)
  - Hospitalisation [Unknown]
  - Rash [Unknown]
  - Anaemia [Unknown]
  - Haematochezia [Unknown]
  - Illness [Unknown]
  - Nephrolithiasis [Unknown]
  - Cardiac operation [Unknown]

NARRATIVE: CASE EVENT DATE: 2019
